FAERS Safety Report 25034174 (Version 2)
Quarter: 2025Q1

REPORT INFORMATION
  Report Type: Spontaneous
  Country: JP (occurrence: JP)
  Receive Date: 20250304
  Receipt Date: 20250327
  Transmission Date: 20250408
  Serious: Yes (Death)
  Sender: BRISTOL-MYERS SQUIBB COMPANY
  Company Number: JP-BRISTOL-MYERS SQUIBB COMPANY-2025-028936

PATIENT
  Age: 93 Year
  Sex: Male

DRUGS (1)
  1. POMALYST [Suspect]
     Active Substance: POMALIDOMIDE
     Indication: Plasma cell myeloma
     Route: 048

REACTIONS (1)
  - Marasmus [Fatal]

NARRATIVE: CASE EVENT DATE: 20240323
